FAERS Safety Report 8977098 (Version 2)
Quarter: 2013Q2

REPORT INFORMATION
  Report Type: Spontaneous
  Country: PL (occurrence: PL)
  Receive Date: 20121219
  Receipt Date: 20130409
  Transmission Date: 20140414
  Serious: Yes (Hospitalization)
  Sender: FDA-Public Use
  Company Number: PL-JNJFOC-20121203209

PATIENT
  Age: 61 Year
  Sex: Female

DRUGS (18)
  1. RISPERIDONE [Suspect]
     Indication: BIPOLAR DISORDER
     Dosage: 3 MG TO 6 MG
     Route: 065
  2. RISPERIDONE [Suspect]
     Indication: BIPOLAR DISORDER
     Dosage: 3MG TO 6MG DAILY
     Route: 065
     Dates: start: 2002
  3. RISPERIDONE [Suspect]
     Indication: BIPOLAR DISORDER
     Route: 065
     Dates: start: 2001
  4. RISPERIDONE [Suspect]
     Indication: DELUSIONAL DISORDER, UNSPECIFIED TYPE
     Dosage: 3 MG TO 6 MG
     Route: 065
  5. RISPERIDONE [Suspect]
     Indication: DELUSIONAL DISORDER, UNSPECIFIED TYPE
     Dosage: 3MG TO 6MG DAILY
     Route: 065
     Dates: start: 2002
  6. RISPERIDONE [Suspect]
     Indication: DELUSIONAL DISORDER, UNSPECIFIED TYPE
     Route: 065
     Dates: start: 2001
  7. QUETIAPINE [Suspect]
     Indication: PRODUCT USED FOR UNKNOWN INDICATION
     Route: 065
  8. VALPROIC ACID [Suspect]
     Indication: PRODUCT USED FOR UNKNOWN INDICATION
     Route: 065
  9. ESTAZOLAM [Suspect]
     Indication: PRODUCT USED FOR UNKNOWN INDICATION
     Dosage: AS NEEDED
     Route: 065
  10. ZOLPIDEM [Suspect]
     Indication: PRODUCT USED FOR UNKNOWN INDICATION
     Dosage: AS NEEDED
     Route: 065
  11. PERAZINE [Suspect]
     Indication: DELUSIONAL DISORDER, UNSPECIFIED TYPE
     Route: 065
  12. CLORAZEPATE DIPOTASSIUM [Suspect]
     Indication: DELUSIONAL DISORDER, UNSPECIFIED TYPE
     Route: 065
  13. OLANZAPINE [Suspect]
     Indication: AKATHISIA
     Route: 065
  14. OLANZAPINE [Suspect]
     Indication: DELUSIONAL DISORDER, UNSPECIFIED TYPE
     Route: 065
  15. FLUOXETINE [Suspect]
     Indication: AKATHISIA
     Route: 065
  16. FLUOXETINE [Suspect]
     Indication: DELUSIONAL DISORDER, UNSPECIFIED TYPE
     Route: 065
  17. CHLORDIAZEPOXIDE [Suspect]
     Indication: AKATHISIA
     Route: 065
  18. CHLORDIAZEPOXIDE [Suspect]
     Indication: DELUSIONAL DISORDER, UNSPECIFIED TYPE
     Route: 065

REACTIONS (2)
  - Rabbit syndrome [Recovering/Resolving]
  - Bipolar I disorder [Unknown]
